FAERS Safety Report 6838474-9 (Version None)
Quarter: 2010Q3

REPORT INFORMATION
  Report Type: 
  Country: None (occurrence: None)
  Receive Date: 20100713
  Receipt Date: 20070613
  Transmission Date: 20110219
  Serious: No
  Sender: FDA-Public Use
  Company Number: US-PFIZER INC-2007050108

PATIENT
  Sex: Female
  Weight: 79.545 kg

DRUGS (9)
  1. CHANTIX [Suspect]
     Indication: SMOKING CESSATION THERAPY
     Dates: start: 20070523
  2. WELLBUTRIN [Concomitant]
  3. QVAR 40 [Concomitant]
  4. ALBUTEROL [Concomitant]
  5. PROTONIX [Concomitant]
  6. GLUCOSAMINE [Concomitant]
  7. ALL OTHER THERAPEUTIC PRODUCTS [Concomitant]
  8. HERBAL PREPARATION [Concomitant]
  9. CLOTRIMAZOLE [Concomitant]
     Indication: FUNGAL INFECTION

REACTIONS (3)
  - APHONIA [None]
  - FATIGUE [None]
  - PAIN [None]
